FAERS Safety Report 6416480-6 (Version None)
Quarter: 2009Q4

REPORT INFORMATION
  Report Type: 
  Country: None (occurrence: None)
  Receive Date: 20091027
  Receipt Date: 20091014
  Transmission Date: 20100525
  Serious: Yes (Other)
  Sender: FDA-Public Use
  Company Number: PHEH2009US11562

PATIENT
  Sex: Male
  Weight: 82.993 kg

DRUGS (7)
  1. EXJADE [Suspect]
     Indication: IRON OVERLOAD
     Dosage: 375 MG, DAILY
     Route: 048
     Dates: start: 20051201, end: 20090827
  2. EXJADE [Suspect]
     Dosage: 500 MG TAB, 3 TAB QD; 125 MG TAB, 2 TAB QD
     Route: 048
     Dates: start: 20051201
  3. FOLATE SODIUM [Concomitant]
     Dosage: UNK
  4. METHADONE HYDROCHLORIDE [Concomitant]
     Dosage: UNK
  5. OXYCODONE [Concomitant]
     Dosage: UNK
  6. COUMADIN [Concomitant]
     Dosage: UNK
  7. ADVAIR DISKUS 100/50 [Concomitant]
     Dosage: 1 GTT, QD

REACTIONS (14)
  - BONE INFARCTION [None]
  - BONE PAIN [None]
  - DIARRHOEA [None]
  - HYPOAESTHESIA [None]
  - HYPOXIA [None]
  - LUNG INFILTRATION [None]
  - MITRAL VALVE INCOMPETENCE [None]
  - PAIN [None]
  - PELVIC PAIN [None]
  - PRODUCTIVE COUGH [None]
  - SARCOIDOSIS [None]
  - SICKLE CELL ANAEMIA WITH CRISIS [None]
  - THROMBOSIS [None]
  - TREATMENT NONCOMPLIANCE [None]
